FAERS Safety Report 6263039-X (Version None)
Quarter: 2009Q3

REPORT INFORMATION
  Report Type: 
  Country: None (occurrence: None)
  Receive Date: 20090707
  Receipt Date: 20090707
  Transmission Date: 20100115
  Serious: No
  Sender: FDA-Public Use
  Company Number: None

PATIENT
  Sex: Female
  Weight: 85.7298 kg

DRUGS (2)
  1. MIACALCIN [Suspect]
     Indication: OSTEOPOROSIS
     Dosage: 1 SPRAY DAILY PER NOSTRIL
     Dates: start: 20070101
  2. ACTONEL [Suspect]
     Indication: OSTEOPOROSIS
     Dosage: 35 MG DAILY P.O.
     Route: 048
     Dates: start: 20040501, end: 20040901

REACTIONS (2)
  - NASAL DISCOMFORT [None]
  - PRODUCT SUBSTITUTION ISSUE [None]
